FAERS Safety Report 8264702-1 (Version None)
Quarter: 2012Q2

REPORT INFORMATION
  Report Type: 
  Country: None (occurrence: None)
  Receive Date: 20120406
  Receipt Date: 20120402
  Transmission Date: 20120825
  Serious: Yes (Other)
  Sender: FDA-Public Use
  Company Number: TH-JNJFOC-20120314925

PATIENT
  Sex: Male

DRUGS (1)
  1. LISTERINE NATURAL GREEN TEA [Suspect]
     Indication: DENTAL DISORDER PROPHYLAXIS
     Dosage: APPROXIMATELY ONE BOTTLE CAPFUL BEFORE BEDTIME FOR AROUND TWO MINUTES
     Route: 048
     Dates: start: 20120326

REACTIONS (5)
  - WRONG TECHNIQUE IN DRUG USAGE PROCESS [None]
  - AGEUSIA [None]
  - GLOSSODYNIA [None]
  - ORAL MUCOSAL EXFOLIATION [None]
  - NEUROPATHY PERIPHERAL [None]
